FAERS Safety Report 4450495-2 (Version None)
Quarter: 2004Q3

REPORT INFORMATION
  Report Type: 
  Country: None (occurrence: None)
  Receive Date: 20040804
  Receipt Date: 20040407
  Transmission Date: 20050211
  Serious: Yes (Hospitalization)
  Sender: FDA-Public Use
  Company Number: 205785

PATIENT
  Sex: Female
  Weight: 78.5 kg

DRUGS (17)
  1. HERCEPTIN [Suspect]
     Indication: BREAST CANCER METASTATIC
     Dosage: 150 MG, 1/WEEK, INTRAVENOUS
     Route: 042
     Dates: start: 20020801, end: 20040402
  2. DOCETAXEL (DOCETAXEL) [Concomitant]
  3. ASPIRIN [Concomitant]
  4. TOPROL-XL [Concomitant]
  5. TYLENOL [Concomitant]
  6. VALTREX [Concomitant]
  7. DIGOXIN [Concomitant]
  8. POTASSIUM CHLORIDE [Concomitant]
  9. MONOPRIL [Concomitant]
  10. ACIPHEX [Concomitant]
  11. LEXAPRO [Concomitant]
  12. FLUCONAZOLE [Concomitant]
  13. VITAMIN B6 [Concomitant]
  14. VITAMIN E [Concomitant]
  15. CALCIUM (CALCIUM NOS) [Concomitant]
  16. LETROZOLE (LETROZOLE) [Concomitant]
  17. GEMCITABINE (GEMCITABINE HYDROCHLORIDE) [Concomitant]

REACTIONS (1)
  - CARDIAC FAILURE CONGESTIVE [None]
